FAERS Safety Report 6768483-X (Version None)
Quarter: 2010Q2

REPORT INFORMATION
  Report Type: 
  Country: None (occurrence: None)
  Receive Date: 20100614
  Receipt Date: 20100506
  Transmission Date: 20101027
  Serious: No
  Sender: FDA-Public Use
  Company Number: US-BAYER-201022943NA

PATIENT
  Age: 53 Year
  Sex: Female
  Weight: 67 kg

DRUGS (6)
  1. MAGNEVIST [Suspect]
     Indication: NUCLEAR MAGNETIC RESONANCE IMAGING
     Dosage: 15 ML OF A 0.25 ML/50 ML
     Route: 014
     Dates: start: 20100506, end: 20100506
  2. MARCAINE [Concomitant]
     Dosage: 0.5% INTO LEFT HIP
     Dates: start: 20100506, end: 20100506
  3. LIDOCAINE [Concomitant]
     Dosage: 1%
     Dates: start: 20100506, end: 20100506
  4. OXILAN NON-IONIZED [Concomitant]
     Dosage: AS USED: 2 ML
     Dates: start: 20100506, end: 20100506
  5. MARCAINE [Concomitant]
     Dosage: 0.5% INTO LEFT SHOULDER JOINT
     Dates: start: 20100506, end: 20100506
  6. LIDOCAINE [Concomitant]
     Dosage: 1%

REACTIONS (2)
  - FEELING HOT [None]
  - NAUSEA [None]
